FAERS Safety Report 23015006 (Version 1)
Quarter: 2023Q4

REPORT INFORMATION
  Report Type: Spontaneous
  Country: FR (occurrence: FR)
  Receive Date: 20231002
  Receipt Date: 20231002
  Transmission Date: 20240109
  Serious: Yes (Death, Other)
  Sender: FDA-Public Use
  Company Number: FR-MYLANLABS-2023M1099792

PATIENT
  Age: 54 Year
  Sex: Female

DRUGS (7)
  1. MIRTAZAPINE [Suspect]
     Active Substance: MIRTAZAPINE
     Indication: Depression
     Dosage: UNK
     Dates: start: 20201212, end: 20201212
  2. CLOBAZAM [Suspect]
     Active Substance: CLOBAZAM
     Indication: Depression
     Dosage: UNK
     Dates: start: 20201212, end: 20201212
  3. QUETIAPINE FUMARATE [Suspect]
     Active Substance: QUETIAPINE FUMARATE
     Indication: Depression
     Dosage: UNK
     Dates: start: 20201212, end: 20201212
  4. ABILIFY [Suspect]
     Active Substance: ARIPIPRAZOLE
     Indication: Depression
     Dosage: UNK
     Dates: start: 20201212, end: 20201212
  5. LYRICA [Suspect]
     Active Substance: PREGABALIN
     Indication: Depression
     Dosage: UNK
  6. PAROXETINE MESYLATE [Suspect]
     Active Substance: PAROXETINE MESYLATE
     Indication: Depression
     Dosage: UNK
     Dates: start: 20201212, end: 20201212
  7. LYRICA [Suspect]
     Active Substance: PREGABALIN
     Indication: Depression
     Dosage: 100 MILLIGRAM, BID
     Dates: start: 20201212, end: 20201212

REACTIONS (6)
  - Drug dispensed to wrong patient [Fatal]
  - Product prescribing error [Fatal]
  - Cardiovascular disorder [Fatal]
  - Wrong patient received product [Fatal]
  - Epistaxis [Fatal]
  - Toxicity to various agents [Fatal]

NARRATIVE: CASE EVENT DATE: 20201201
